FAERS Safety Report 15660233 (Version 2)
Quarter: 2019Q1

REPORT INFORMATION
  Report Type: Spontaneous
  Country: JP (occurrence: JP)
  Receive Date: 20181127
  Receipt Date: 20190103
  Transmission Date: 20190417
  Serious: Yes (Hospitalization, Other)
  Sender: FDA-Public Use
  Company Number: JP-ROCHE-2206147

PATIENT
  Age: 56 Year
  Sex: Female
  Weight: 59 kg

DRUGS (9)
  1. DOCETAXEL HYDRATE [Concomitant]
     Active Substance: DOCETAXEL
     Indication: BREAST CANCER
     Dosage: DOSAGE IS UNCERTAIN.
     Route: 041
     Dates: start: 201808, end: 201809
  2. PERJETA [Suspect]
     Active Substance: PERTUZUMAB
     Indication: BREAST CANCER
     Route: 041
     Dates: start: 20180820, end: 20180820
  3. HERCEPTIN [Suspect]
     Active Substance: TRASTUZUMAB
     Route: 041
     Dates: start: 20180914, end: 20180914
  4. HUMALOG MIX [Concomitant]
     Active Substance: INSULIN LISPRO
     Dosage: DOSAGE IS UNCERTAIN.
     Route: 065
  5. PERJETA [Suspect]
     Active Substance: PERTUZUMAB
     Route: 041
     Dates: start: 20180914, end: 20180914
  6. PLETAAL [Concomitant]
     Active Substance: CILOSTAZOL
     Dosage: DOSAGE IS UNCERTAIN.
     Route: 048
  7. HERCEPTIN [Suspect]
     Active Substance: TRASTUZUMAB
     Indication: BREAST CANCER
     Route: 041
     Dates: start: 20180820, end: 20180820
  8. JANUVIA [Concomitant]
     Active Substance: SITAGLIPTIN PHOSPHATE
     Dosage: DOSAGE IS UNCERTAIN.
     Route: 048
  9. MEXILETINE HYDROCHLORIDE. [Concomitant]
     Active Substance: MEXILETINE HYDROCHLORIDE
     Dosage: DOSAGE IS UNCERTAIN.
     Route: 048

REACTIONS (4)
  - Angina pectoris [Unknown]
  - Cardiac dysfunction [Unknown]
  - Cardiac failure congestive [Recovering/Resolving]
  - Coronary artery stenosis [Unknown]

NARRATIVE: CASE EVENT DATE: 201809
